FAERS Safety Report 15674622 (Version 2)
Quarter: 2019Q1

REPORT INFORMATION
  Report Type: Spontaneous
  Country: US (occurrence: US)
  Receive Date: 20181130
  Receipt Date: 20190112
  Transmission Date: 20190417
  Serious: No
  Sender: FDA-Public Use
  Company Number: US-TEVA-2018-US-982139

PATIENT
  Age: 55 Year
  Sex: Female

DRUGS (4)
  1. PROGESTERONE. [Concomitant]
     Active Substance: PROGESTERONE
     Route: 065
  2. HYDROXOCOBALAMIN INJECTION USP 30K MCG/30ML [Suspect]
     Active Substance: HYDROXOCOBALAMIN
     Indication: PRURITUS
  3. HYDROXOCOBALAMIN INJECTION USP 30K MCG/30ML [Suspect]
     Active Substance: HYDROXOCOBALAMIN
     Indication: AUTOIMMUNE THYROIDITIS
     Dosage: 30K MCG/30ML
     Route: 065
     Dates: start: 20181103, end: 20181117
  4. HYDROXOCOBALAMIN INJECTION USP 30K MCG/30ML [Suspect]
     Active Substance: HYDROXOCOBALAMIN
     Indication: SWELLING

REACTIONS (7)
  - Skin weeping [Unknown]
  - Injection site warmth [Unknown]
  - Rash generalised [Unknown]
  - Injection site erythema [Unknown]
  - Injection site urticaria [Unknown]
  - Injection site pruritus [Unknown]
  - Injection site pustule [Unknown]
